FAERS Safety Report 21686132 (Version 1)
Quarter: 2022Q4

REPORT INFORMATION
  Report Type: Spontaneous
  Country: US (occurrence: US)
  Receive Date: 20221206
  Receipt Date: 20221206
  Transmission Date: 20230113
  Serious: No
  Sender: FDA-Public Use
  Company Number: US-SANOFI-01389420

PATIENT
  Sex: Female

DRUGS (1)
  1. DUPIXENT [Suspect]
     Active Substance: DUPILUMAB
     Indication: Asthma
     Dosage: 300MG, QOW

REACTIONS (5)
  - Arthritis [Unknown]
  - Pain in extremity [Unknown]
  - Urticaria [Unknown]
  - Injection site reaction [Unknown]
  - Asthma [Unknown]
